FAERS Safety Report 7049034-1 (Version None)
Quarter: 2010Q4

REPORT INFORMATION
  Report Type: 
  Country: None (occurrence: None)
  Receive Date: 20101018
  Receipt Date: 20101004
  Transmission Date: 20110411
  Serious: Yes (Hospitalization)
  Sender: FDA-Public Use
  Company Number: PHHY2010FR68169

PATIENT
  Sex: Female
  Weight: 58.5 kg

DRUGS (10)
  1. LESCOL [Suspect]
     Indication: HYPERCHOLESTEROLAEMIA
     Dosage: UNK
  2. XARELTO [Suspect]
     Indication: PROPHYLAXIS
     Dosage: 10 MG DAILY
     Dates: start: 20100914, end: 20100920
  3. DABIGATRAN [Suspect]
     Indication: PROPHYLAXIS
     Dosage: 75 MG 2 DF DAILY
     Dates: start: 20100921, end: 20100922
  4. DITROPAN [Suspect]
     Indication: INCONTINENCE
     Dosage: 10 MG DAILY
  5. ESOMEPRAZOLE [Suspect]
     Dosage: 40 MG DAILY
     Dates: start: 20100914
  6. BI-PROFENID [Suspect]
     Indication: INFLAMMATION
     Dosage: UNK
     Dates: start: 20100914, end: 20100921
  7. HYPERIUM [Concomitant]
     Indication: HYPERTENSION
     Dosage: 1 MG
  8. TARDYFERON [Concomitant]
     Indication: ANAEMIA
     Dosage: UNK
  9. TEMESTA [Concomitant]
     Dosage: UNK
  10. ACETAMINOPHEN [Concomitant]
     Dosage: UNK

REACTIONS (4)
  - HAEMORRHAGE [None]
  - HIP ARTHROPLASTY [None]
  - HYPERCREATINAEMIA [None]
  - POST PROCEDURAL HAEMATOMA [None]
